FAERS Safety Report 6637080-9 (Version None)
Quarter: 2010Q1

REPORT INFORMATION
  Report Type: 
  Country: None (occurrence: None)
  Receive Date: 20100316
  Receipt Date: 20100305
  Transmission Date: 20100710
  Serious: Yes (Life-Threatening, Other)
  Sender: FDA-Public Use
  Company Number: CN-ROCHE-689242

PATIENT
  Sex: Male
  Weight: 65 kg

DRUGS (3)
  1. MYCOPHENOLATE MOFETIL [Suspect]
     Indication: RENAL TRANSPLANT
     Route: 048
     Dates: start: 20061222, end: 20070102
  2. MYCOPHENOLATE MOFETIL [Suspect]
     Route: 048
     Dates: start: 20080101
  3. PROGRAF [Concomitant]
     Indication: RENAL TRANSPLANT
     Dates: start: 20080201

REACTIONS (4)
  - AORTIC RUPTURE [None]
  - DIALYSIS [None]
  - NEPHRECTOMY [None]
  - RENAL FAILURE [None]
